FAERS Safety Report 9192712 (Version 1)
Quarter: 2013Q1

REPORT INFORMATION
  Report Type: Spontaneous
  Country: US (occurrence: None)
  Receive Date: 20120703
  Receipt Date: 20120703
  Transmission Date: 20140127
  Serious: Yes (Hospitalization, Other)
  Sender: FDA-Public Use
  Company Number: PHEH2012US010808

PATIENT
  Age: 52 Year
  Sex: Male

DRUGS (6)
  1. GILENYA [Suspect]
     Indication: RELAPSING-REMITTING MULTIPLE SCLEROSIS
     Route: 048
     Dates: start: 20120523
  2. CARBAMAZEPINE (CARBMAZEPINE) [Concomitant]
  3. BABAPENTIN (GABAPENTIN) [Concomitant]
  4. FENOFIBRATE (FENOFIBRATE) (FENOFIBRATE) [Concomitant]
  5. SIMVASTATIN (SIMVASTATIN) [Concomitant]
  6. VITAMIN D (ERGOCALCIFEROL) [Suspect]

REACTIONS (4)
  - Atrioventricular block second degree [None]
  - Atrioventricular block first degree [None]
  - Bradycardia [None]
  - Electrocardiogram PR prolongation [None]
